FAERS Safety Report 24793951 (Version 1)
Quarter: 2024Q4

REPORT INFORMATION
  Report Type: Spontaneous
  Country: PL (occurrence: PL)
  Receive Date: 20241231
  Receipt Date: 20241231
  Transmission Date: 20250115
  Serious: Yes (Death)
  Sender: SAMSUNG BIOEPIS
  Company Number: PL-SAMSUNG BIOEPIS-SB-2024-39404

PATIENT

DRUGS (3)
  1. INFLIXIMAB [Suspect]
     Active Substance: INFLIXIMAB
     Indication: Rheumatoid arthritis
  2. METHOTREXATE [Suspect]
     Active Substance: METHOTREXATE
     Indication: Rheumatoid arthritis
  3. PREDNISONE [Concomitant]
     Active Substance: PREDNISONE
     Indication: Product used for unknown indication

REACTIONS (1)
  - Cardiovascular disorder [Fatal]
